FAERS Safety Report 25526509 (Version 1)
Quarter: 2025Q3

REPORT INFORMATION
  Report Type: Report from Study
  Country: EU (occurrence: EU)
  Receive Date: 20250707
  Receipt Date: 20250707
  Transmission Date: 20251021
  Serious: Yes (Hospitalization)
  Sender: MYLAN
  Company Number: EU-MYLANLABS-2025M1054502

PATIENT
  Sex: Male

DRUGS (1)
  1. GLATIRAMER ACETATE [Suspect]
     Active Substance: GLATIRAMER ACETATE
     Indication: Multiple sclerosis
     Dosage: UNK, 3XW (40 MG/ ML)
     Dates: start: 20250204, end: 20250611

REACTIONS (2)
  - Multiple sclerosis relapse [Recovered/Resolved with Sequelae]
  - Blindness unilateral [Recovered/Resolved with Sequelae]

NARRATIVE: CASE EVENT DATE: 20250611
